FAERS Safety Report 9351512 (Version 2)
Quarter: 2013Q3

REPORT INFORMATION
  Report Type: Spontaneous
  Country: US (occurrence: US)
  Receive Date: 20130617
  Receipt Date: 20130802
  Transmission Date: 20140515
  Serious: No
  Sender: FDA-Public Use
  Company Number: US-PFIZER INC-2013181434

PATIENT
  Age: 24 Year
  Sex: Female
  Weight: 47.62 kg

DRUGS (19)
  1. NEURONTIN [Suspect]
     Indication: FEELING OF RELAXATION
     Dosage: 300 MG, 1X/DAY
     Dates: start: 20130613
  2. NEURONTIN [Suspect]
     Indication: SLEEP DISORDER
     Dosage: 300 MG, UNK
     Route: 048
     Dates: start: 20130612, end: 20130615
  3. NEURONTIN [Suspect]
     Indication: ANXIETY
  4. ABILIFY [Concomitant]
     Indication: DEPRESSION
     Dosage: 10 MG, 1X/DAY
  5. ABILIFY [Concomitant]
     Indication: BIPOLAR DISORDER
  6. ABILIFY [Concomitant]
     Indication: POST-TRAUMATIC STRESS DISORDER
  7. CELEXA [Concomitant]
     Indication: DEPRESSION
     Dosage: 20 MG, UNK
  8. ZYPREXA ZYDIS [Concomitant]
     Indication: DEPRESSION
     Dosage: 50 MG, 1X/DAY
  9. ZYPREXA ZYDIS [Concomitant]
     Indication: BIPOLAR DISORDER
  10. ZYPREXA ZYDIS [Concomitant]
     Indication: POST-TRAUMATIC STRESS DISORDER
  11. ATIVAN [Concomitant]
     Indication: DIALYSIS
     Dosage: 1 MG, 3X/WEEK
  12. PROGRAF [Concomitant]
     Indication: TRANSPLANT REJECTION
     Dosage: 7 MG, 2X/DAY
  13. FLAGYL [Concomitant]
     Indication: BACTERIAL INFECTION
     Dosage: 250 MG, 1X/DAY
  14. NEXIUM [Concomitant]
     Indication: GASTROOESOPHAGEAL REFLUX DISEASE
     Dosage: 40 MG, 1X/DAY
  15. RENVELA [Concomitant]
     Indication: PHOSPHORUS METABOLISM DISORDER
     Dosage: 3 DF, 2X/DAY
  16. CELLCEPT [Concomitant]
     Indication: RENAL TRANSPLANT
     Dosage: 500 MG, 2X/DAY
  17. VITAMIN B6 [Concomitant]
     Indication: ASTHENIA
     Dosage: 100 MG, 1X/DAY
  18. CENTRUM [Concomitant]
     Dosage: UNK, 1X/DAY
  19. PREDNISONE [Concomitant]
     Dosage: 5 MG, 1X/DAY

REACTIONS (6)
  - Off label use [Unknown]
  - Dysarthria [Recovered/Resolved]
  - Balance disorder [Unknown]
  - Feeling hot [Unknown]
  - Paraesthesia [Unknown]
  - Dizziness [Recovered/Resolved]
